FAERS Safety Report 7522108-4 (Version None)
Quarter: 2011Q2

REPORT INFORMATION
  Report Type: 
  Country: None (occurrence: None)
  Receive Date: 20110603
  Receipt Date: 20110526
  Transmission Date: 20111010
  Serious: Yes (Other)
  Sender: FDA-Public Use
  Company Number: AU-ABBOTT-11P-008-0725531-00

PATIENT
  Age: 53 Year
  Sex: Female
  Weight: 72 kg

DRUGS (10)
  1. FAMVIR [Concomitant]
     Indication: HERPES ZOSTER
     Dates: start: 20110111, end: 20110118
  2. NEXIUM [Concomitant]
     Indication: GASTROOESOPHAGEAL REFLUX DISEASE
     Dates: start: 20050101
  3. DOXYCYCLINE [Concomitant]
     Indication: PROPHYLAXIS
     Dates: start: 20110111, end: 20110118
  4. THYROXIN [Concomitant]
     Indication: HYPOTHYROIDISM
     Dates: start: 20050101
  5. FEXOFENADINE HCL [Concomitant]
     Indication: SINUSITIS
     Dates: start: 20101020
  6. ACETAMINOPHEN [Concomitant]
     Indication: PAIN
     Dates: start: 20101218
  7. DOXYCYCLINE [Concomitant]
     Indication: HERPES ZOSTER
  8. REMIFEMIN [Concomitant]
     Indication: MENOPAUSE
     Dates: start: 20080101, end: 20101101
  9. HUMIRA [Suspect]
     Indication: SPONDYLITIS
     Route: 058
     Dates: start: 20101005, end: 20110405
  10. SERETIDE [Concomitant]
     Indication: ASTHMA
     Dates: start: 20060101

REACTIONS (1)
  - VASCULITIS CEREBRAL [None]
